FAERS Safety Report 20515215 (Version 2)
Quarter: 2022Q2

REPORT INFORMATION
  Report Type: Spontaneous
  Country: CA (occurrence: CA)
  Receive Date: 20220224
  Receipt Date: 20220404
  Transmission Date: 20220720
  Serious: Yes (Death)
  Sender: FDA-Public Use
  Company Number: CA-PFIZER INC-202101048659

PATIENT
  Age: 61 Year
  Sex: Female

DRUGS (7)
  1. RUXIENCE [Suspect]
     Active Substance: RITUXIMAB-PVVR
     Indication: Rheumatoid arthritis
     Dosage: DAY 1 AND DAY 15
     Route: 042
     Dates: start: 20210915
  2. RUXIENCE [Suspect]
     Active Substance: RITUXIMAB-PVVR
     Dosage: DAY 1 AND DAY 15
     Route: 042
     Dates: start: 20210929
  3. DEPO-MEDROL [Concomitant]
     Active Substance: METHYLPREDNISOLONE ACETATE
     Dosage: 1 DF
  4. LYRICA [Concomitant]
     Active Substance: PREGABALIN
     Dosage: 150 MG
  5. PROLIA [Concomitant]
     Active Substance: DENOSUMAB
     Dosage: 1 DF
  6. VITAMIN D3 [Concomitant]
     Active Substance: CHOLECALCIFEROL
     Dosage: 1000 IU
  7. TYLENOL [Concomitant]
     Active Substance: ACETAMINOPHEN
     Indication: Arthritis
     Dosage: 1 DF

REACTIONS (1)
  - Death [Fatal]
